FAERS Safety Report 12904760 (Version 2)
Quarter: 2016Q4

REPORT INFORMATION
  Report Type: Spontaneous
  Country: FR (occurrence: FR)
  Receive Date: 20161102
  Receipt Date: 20161102
  Transmission Date: 20170207
  Serious: Yes (Other)
  Sender: FDA-Public Use
  Company Number: FR-GLAXOSMITHKLINE-FR2016GSK161074

PATIENT
  Age: 49 Year
  Sex: Female

DRUGS (7)
  1. PREVISCAN (FLUINDIONE) [Concomitant]
     Active Substance: FLUINDIONE
  2. LYSANXIA [Concomitant]
     Active Substance: PRAZEPAM
  3. DEROXAT [Concomitant]
     Active Substance: PAROXETINE HYDROCHLORIDE
  4. CYNOMEL [Concomitant]
     Active Substance: LIOTHYRONINE SODIUM
  5. NICOPASS [Suspect]
     Active Substance: NICOTINE
     Indication: SMOKING CESSATION THERAPY
     Dosage: UNK
     Dates: start: 20160907
  6. NICOPATCH [Suspect]
     Active Substance: NICOTINE
     Indication: SMOKING CESSATION THERAPY
     Dosage: UNK
     Route: 062
     Dates: start: 20160907
  7. EZETROL [Concomitant]
     Active Substance: EZETIMIBE

REACTIONS (2)
  - Overdose [Unknown]
  - International normalised ratio increased [Unknown]
